FAERS Safety Report 5234274-4 (Version None)
Quarter: 2007Q1

REPORT INFORMATION
  Report Type: 
  Country: None (occurrence: None)
  Receive Date: 20070209
  Receipt Date: 20070131
  Transmission Date: 20070707
  Serious: Yes (Death, Hospitalization)
  Sender: FDA-Public Use
  Company Number: CA-NOVOPROD-260465

PATIENT
  Sex: Female
  Weight: 55 kg

DRUGS (4)
  1. NOVOSEVEN [Suspect]
     Indication: TRAUMATIC HAEMORRHAGE
     Dosage: 1 DOSE
     Route: 042
     Dates: start: 20070126, end: 20070126
  2. LACTATED RINGER'S [Concomitant]
  3. HYPERTONIC SOLUTIONS [Concomitant]
  4. RED BLOOD CELLS [Concomitant]

REACTIONS (1)
  - CARDIAC ARREST [None]
